FAERS Safety Report 24934665 (Version 1)
Quarter: 2025Q1

REPORT INFORMATION
  Report Type: Report from Study
  Country: US (occurrence: US)
  Receive Date: 20250206
  Receipt Date: 20250206
  Transmission Date: 20250409
  Serious: No
  Sender: EXELIXIS
  Company Number: US-EXELIXIS-EXL-2024-001410

PATIENT
  Sex: Female

DRUGS (26)
  1. CABOMETYX [Suspect]
     Active Substance: CABOZANTINIB S-MALATE
     Indication: Metastases to liver
     Dosage: 20 MG, QD
     Dates: start: 20240929
  2. CABOMETYX [Suspect]
     Active Substance: CABOZANTINIB S-MALATE
     Indication: Metastasis
  3. CREON [Concomitant]
     Active Substance: PANCRELIPASE AMYLASE\PANCRELIPASE LIPASE\PANCRELIPASE PROTEASE
  4. PEMETREXED [Concomitant]
     Active Substance: PEMETREXED
  5. ZINC [Concomitant]
     Active Substance: ZINC
  6. SENOKOT [Concomitant]
     Active Substance: SENNOSIDES
  7. PROCHLORPERAZINE [Concomitant]
     Active Substance: PROCHLORPERAZINE
  8. AFRIN [Concomitant]
     Active Substance: OXYMETAZOLINE HYDROCHLORIDE
  9. METOPROLOL [Concomitant]
     Active Substance: METOPROLOL
  10. SELENIUM [Concomitant]
     Active Substance: SELENIUM
  11. SACCHAROMYCES CEREVISIAE [Concomitant]
     Active Substance: SACCHAROMYCES CEREVISIAE
  12. LOPERAMIDE [Concomitant]
     Active Substance: LOPERAMIDE
  13. LEVOTHYROXINE [Concomitant]
     Active Substance: LEVOTHYROXINE
  14. MOTRIN [Concomitant]
     Active Substance: IBUPROFEN
  15. HYDROCORTISONE [Concomitant]
     Active Substance: HYDROCORTISONE
  16. MUCINEX [Concomitant]
     Active Substance: GUAIFENESIN
  17. FLECAINIDE [Concomitant]
     Active Substance: FLECAINIDE
  18. COTELLIC [Concomitant]
     Active Substance: COBIMETINIB FUMARATE
  19. CLEOCIN [Concomitant]
     Active Substance: CLINDAMYCIN PHOSPHATE
  20. VITAMIN D3 [Concomitant]
     Active Substance: CHOLECALCIFEROL
  21. CALCIUM [Concomitant]
     Active Substance: CALCIUM
  22. TUMS [Concomitant]
     Active Substance: CALCIUM CARBONATE
  23. ELIQUIS [Concomitant]
     Active Substance: APIXABAN
  24. AMOXICILLIN [Concomitant]
     Active Substance: AMOXICILLIN
  25. ACETAMINOPHEN [Concomitant]
     Active Substance: ACETAMINOPHEN
  26. VERZENIO [Concomitant]
     Active Substance: ABEMACICLIB

REACTIONS (2)
  - Liver function test increased [Unknown]
  - Off label use [Unknown]
